FAERS Safety Report 16072529 (Version 1)
Quarter: 2019Q1

REPORT INFORMATION
  Report Type: Spontaneous
  Country: NL (occurrence: NL)
  Receive Date: 20190314
  Receipt Date: 20190314
  Transmission Date: 20190418
  Serious: Yes (Other)
  Sender: FDA-Public Use
  Company Number: NL-TEVA-2019-NL-1022979

PATIENT
  Age: 52 Year
  Sex: Female
  Weight: 56 kg

DRUGS (1)
  1. TRIMETHOPRIM TABLET, 300 MG (MILLIGRAM) [Suspect]
     Active Substance: TRIMETHOPRIM
     Indication: CYSTITIS
     Dosage: 1 100 OF 300 MG
     Dates: start: 20190215, end: 20190215

REACTIONS (4)
  - Shock [Unknown]
  - Hypersensitivity [Unknown]
  - Hypotension [Unknown]
  - Vasodilatation [Unknown]

NARRATIVE: CASE EVENT DATE: 20190215
